FAERS Safety Report 5765028-8 (Version None)
Quarter: 2008Q2

REPORT INFORMATION
  Report Type: 
  Country: None (occurrence: None)
  Receive Date: 20080606
  Receipt Date: 20080606
  Transmission Date: 20081010
  Serious: Yes (Other)
  Sender: FDA-Public Use
  Company Number: None

PATIENT
  Age: 57 Year
  Sex: Male

DRUGS (1)
  1. DIGITEK 250MCG (MYLAN BRAND) [Suspect]
     Dosage: 250MCG ONE TABLET DAILY PO
     Route: 048
     Dates: start: 20080420

REACTIONS (2)
  - CARDIAC FLUTTER [None]
  - PALPITATIONS [None]
